FAERS Safety Report 11907612 (Version 3)
Quarter: 2016Q1

REPORT INFORMATION
  Report Type: Report from Study
  Country: DE (occurrence: DE)
  Receive Date: 20160111
  Receipt Date: 20160128
  Transmission Date: 20160526
  Serious: Yes (Hospitalization)
  Sender: FDA-Public Use
  Company Number: PHHY2015DE153196

PATIENT
  Sex: Female

DRUGS (3)
  1. EXTAVIA [Suspect]
     Active Substance: INTERFERON BETA-1B
     Dosage: 250 ?G/ML, QOD
     Route: 058
     Dates: end: 20151229
  2. EXTAVIA [Suspect]
     Active Substance: INTERFERON BETA-1B
     Indication: MULTIPLE SCLEROSIS
     Dosage: 125 ?G/ML, QOD
     Route: 058
     Dates: start: 20151111
  3. EXTAVIA [Suspect]
     Active Substance: INTERFERON BETA-1B
     Dosage: 187.5 ?G/ML, QOD
     Route: 058

REACTIONS (5)
  - Menstrual disorder [Not Recovered/Not Resolved]
  - Gastrointestinal infection [Recovered/Resolved]
  - Malaise [Recovered/Resolved]
  - Diarrhoea [Recovered/Resolved]
  - Vaginal haemorrhage [Recovered/Resolved]

NARRATIVE: CASE EVENT DATE: 20151111
